FAERS Safety Report 6679387-5 (Version None)
Quarter: 2010Q2

REPORT INFORMATION
  Report Type: 
  Country: None (occurrence: None)
  Receive Date: 20100409
  Receipt Date: 20100326
  Transmission Date: 20101027
  Serious: Yes (Hospitalization)
  Sender: FDA-Public Use
  Company Number: 233187J10USA

PATIENT
  Age: 58 Year
  Sex: Female

DRUGS (5)
  1. REBIF [Suspect]
     Dosage: 22 MCG, 3 IN 1 WK, SUBCUTANEOUS
     Route: 058
     Dates: start: 20090601
  2. SYMBICORT [Concomitant]
  3. VENTOLIN [Concomitant]
  4. PULMICORT [Concomitant]
  5. NERVE BLOCK (ALL OTHER THERAPEUTIC PRODUCTS) [Concomitant]

REACTIONS (5)
  - ASTHMA [None]
  - DECREASED APPETITE [None]
  - HEPATIC ENZYME INCREASED [None]
  - INJECTION SITE DISCOLOURATION [None]
  - WEIGHT DECREASED [None]
